FAERS Safety Report 14987430 (Version 1)
Quarter: 2018Q2

REPORT INFORMATION
  Report Type: Spontaneous
  Country: US (occurrence: US)
  Receive Date: 20180518
  Receipt Date: 20180518
  Transmission Date: 20180711
  Serious: Yes (Death)
  Sender: FDA-Public Use
  Company Number: None

PATIENT
  Age: 64 Year
  Sex: Female

DRUGS (2)
  1. TEMOZOLOMIDE. [Suspect]
     Active Substance: TEMOZOLOMIDE
     Indication: TRANSPLANT
     Dosage: ?          OTHER FREQUENCY:DAILY X 5;?
     Route: 048
     Dates: start: 20180313
  2. TEMOZOLOMIDE. [Suspect]
     Active Substance: TEMOZOLOMIDE
     Indication: TRANSPLANT
     Dosage: ?          OTHER FREQUENCY:DAILY X 5;?
     Route: 048
     Dates: start: 20171207

REACTIONS (1)
  - Death [None]

NARRATIVE: CASE EVENT DATE: 20180511
